FAERS Safety Report 9245617 (Version 1)
Quarter: 2013Q2

REPORT INFORMATION
  Report Type: Spontaneous
  Country: ES (occurrence: ES)
  Receive Date: 20130422
  Receipt Date: 20130422
  Transmission Date: 20140414
  Serious: Yes (Death, Hospitalization)
  Sender: FDA-Public Use
  Company Number: PHHY2013ES037353

PATIENT
  Age: 85 Year
  Sex: Male

DRUGS (1)
  1. EXJADE [Suspect]
     Indication: MYELODYSPLASTIC SYNDROME
     Dosage: 500 MG, BID
     Route: 048
     Dates: start: 20130404, end: 20130410

REACTIONS (4)
  - Generalised oedema [Fatal]
  - Pulmonary embolism [Fatal]
  - Malaise [Unknown]
  - Urine output increased [Unknown]
